FAERS Safety Report 5907642-2 (Version None)
Quarter: 2008Q4

REPORT INFORMATION
  Report Type: 
  Country: None (occurrence: None)
  Receive Date: 20081002
  Receipt Date: 20081002
  Transmission Date: 20090506
  Serious: Yes (Disabling, Other)
  Sender: FDA-Public Use
  Company Number: None

PATIENT
  Age: 4 Year
  Sex: Male
  Weight: 21.7727 kg

DRUGS (1)
  1. CORTEF [Suspect]
     Indication: ADRENAL INSUFFICIENCY
     Dosage: 5MG/2.5 MG 5MG AM, 2.-5 MG PM PO
     Route: 048
     Dates: start: 20080421, end: 20080529

REACTIONS (5)
  - CONDITION AGGRAVATED [None]
  - DRUG DISPENSING ERROR [None]
  - FLUID RETENTION [None]
  - GASTROOESOPHAGEAL REFLUX DISEASE [None]
  - MEDICATION ERROR [None]
